FAERS Safety Report 5483308-0 (Version None)
Quarter: 2007Q4

REPORT INFORMATION
  Report Type: 
  Country: None (occurrence: None)
  Receive Date: 20071012
  Receipt Date: 20071003
  Transmission Date: 20080405
  Serious: Yes (Other)
  Sender: FDA-Public Use
  Company Number: PHBS2007JP16105

PATIENT
  Age: 56 Year
  Sex: Male

DRUGS (5)
  1. CICLOSPORIN [Suspect]
     Indication: FOCAL GLOMERULOSCLEROSIS
     Dosage: UNK, UNK
     Route: 048
     Dates: start: 20050101
  2. DIURETICS [Concomitant]
     Indication: FOCAL GLOMERULOSCLEROSIS
     Dosage: UNK, UNK
     Route: 042
     Dates: start: 20050101
  3. STEROIDS NOS [Concomitant]
     Indication: FOCAL GLOMERULOSCLEROSIS
     Dosage: 0.7 MG/KG/DAY
     Route: 048
     Dates: start: 20050101
  4. STEROIDS NOS [Concomitant]
     Dosage: PULSE THERAPY: 2 TIMES
  5. PLASMAPHERESIS [Concomitant]
     Dates: start: 20050101

REACTIONS (7)
  - CYTOMEGALOVIRUS ENTEROCOLITIS [None]
  - DIALYSIS [None]
  - DISEASE PROGRESSION [None]
  - FOCAL GLOMERULOSCLEROSIS [None]
  - LARGE INTESTINAL ULCER HAEMORRHAGE [None]
  - MELAENA [None]
  - RENAL FAILURE CHRONIC [None]
